FAERS Safety Report 25934517 (Version 3)
Quarter: 2025Q4

REPORT INFORMATION
  Report Type: Spontaneous
  Country: US (occurrence: US)
  Receive Date: 20251017
  Receipt Date: 20251123
  Transmission Date: 20260118
  Serious: Yes (Hospitalization, Other)
  Sender: ABBVIE
  Company Number: US-ABBVIE-6507020

PATIENT
  Age: 70 Year

DRUGS (17)
  1. SKYRIZI [Suspect]
     Active Substance: RISANKIZUMAB-RZAA
     Indication: Inflammatory bowel disease
     Dosage: TIME INTERVAL: TOTAL: STRENGTH-360 MG/2.4ML, WEEK 12
     Route: 058
  2. SKYRIZI [Suspect]
     Active Substance: RISANKIZUMAB-RZAA
     Dosage: STRENGTH-360 MG/2.4ML, EVERY 8 WEEKS
     Route: 058
  3. SKYRIZI [Suspect]
     Active Substance: RISANKIZUMAB-RZAA
     Indication: Inflammatory bowel disease
     Dosage: TIME INTERVAL: TOTAL: STRENGTH-600 MG/10ML,WEEK 0, INJECT 10 MLS
     Route: 042
  4. SKYRIZI [Suspect]
     Active Substance: RISANKIZUMAB-RZAA
     Indication: Inflammatory bowel disease
     Dosage: TIME INTERVAL: TOTAL: STRENGTH-600 MG/10ML,WEEK 4, INJECT 10 MLS
     Route: 042
  5. SKYRIZI [Suspect]
     Active Substance: RISANKIZUMAB-RZAA
     Indication: Inflammatory bowel disease
     Dosage: TIME INTERVAL: TOTAL: STRENGTH-600 MG/10ML,WEEK 8, INJECT 10 MLS
     Route: 042
  6. TYLENOL [Concomitant]
     Active Substance: ACETAMINOPHEN
     Indication: Pain
     Dosage: TAKE 1-2 TABLETS(500-1,000 MG TOTAL) BY MOUTH DAILY AS NEEDED FOR PAIN
     Route: 048
  7. FLUTICASONE PROPIONATE [Concomitant]
     Active Substance: FLUTICASONE PROPIONATE
     Indication: Multiple allergies
     Dosage: STRENGTH-50 MCG/ACT, SUSPENSION, 1 SPRAY BY EACH NOSTRIL ROUTE 2(TWO) TIMES DAILY AS NEEDED FOR A...
     Route: 045
  8. Thera-m [Concomitant]
     Indication: Product used for unknown indication
     Route: 048
  9. PROTONIX [Concomitant]
     Active Substance: PANTOPRAZOLE SODIUM
     Indication: Product used for unknown indication
     Dosage: STRENGTH-40MG
     Route: 048
  10. DELTASONE [Concomitant]
     Active Substance: PREDNISONE
     Indication: Product used for unknown indication
     Dosage: STRENGTH-10MG, TAKE 2 TABLETS(20 MG TOTAL) BY MOUTH DAILY. DECREASE BY 10 MG EVERY 2 WEEKS
     Route: 048
  11. PROBIOTICS NOS [Concomitant]
     Active Substance: PROBIOTICS NOS
     Indication: Product used for unknown indication
     Dosage: TAKING 2 CAPSULES IN AM AND 1 IN PM
     Route: 048
  12. KENALOG [Concomitant]
     Active Substance: TRIAMCINOLONE ACETONIDE
     Indication: Tendon disorder
     Dosage: STRENGTH-0.1%, APPLY TOPICALLY 2(TWO) TIMES DAILY AS NEEDED OR TENDON ON LEFT FOOT.
  13. Zoster [Concomitant]
     Indication: Product used for unknown indication
     Dosage: TIME INTERVAL: TOTAL: #2
     Dates: start: 20250912, end: 20250912
  14. Calcium+magnesium vitamin d [Concomitant]
     Indication: Product used for unknown indication
     Dosage: TAKE 2 TABLETS BY MOUTH DAILY
     Route: 048
  15. VITAMIN C [Concomitant]
     Active Substance: ASCORBIC ACID
     Indication: Product used for unknown indication
     Dosage: DOSE-65-125 MG,
     Route: 048
  16. IRON [Concomitant]
     Active Substance: IRON
     Indication: Product used for unknown indication
     Dosage: STRENGTH-65-125 MG
     Route: 048
  17. SHINGRIX [Concomitant]
     Active Substance: RECOMBINANT VARICELLA ZOSTER VIRUS (VZV) GLYCOPROTEIN E
     Indication: Product used for unknown indication

REACTIONS (5)
  - Pulmonary embolism [Recovered/Resolved]
  - Syncope [Recovered/Resolved]
  - Chest pain [Recovered/Resolved]
  - Hypotension [Recovered/Resolved]
  - Dyspnoea [Recovered/Resolved]

NARRATIVE: CASE EVENT DATE: 20251003
